FAERS Safety Report 10619853 (Version 1)
Quarter: 2014Q4

REPORT INFORMATION
  Report Type: Spontaneous
  Country: GB (occurrence: None)
  Receive Date: 20141128
  Receipt Date: 20141128
  Transmission Date: 20150529
  Serious: Yes (Other)
  Sender: FDA-Public Use
  Company Number: IMP_08241_2014

PATIENT
  Sex: Male

DRUGS (1)
  1. BACLOFEN (BACLOFEN) [Suspect]
     Active Substance: BACLOFEN
     Indication: ALCOHOLISM
     Route: 048

REACTIONS (10)
  - Self-medication [None]
  - Photopsia [None]
  - Somnolence [None]
  - Therapeutic response unexpected [None]
  - Paranoia [None]
  - Withdrawal syndrome [None]
  - Muscle spasms [None]
  - Nightmare [None]
  - Vision blurred [None]
  - Suicidal ideation [None]
